FAERS Safety Report 9000992 (Version 1)
Quarter: 2012Q4

REPORT INFORMATION
  Report Type: Spontaneous
  Country: US (occurrence: None)
  Receive Date: 20121226
  Receipt Date: 20121226
  Transmission Date: 20130627
  Serious: Yes (Other)
  Sender: FDA-Public Use
  Company Number: 2012SGN00592

PATIENT
  Age: 31 Year
  Sex: Female

DRUGS (2)
  1. ADCETRIS [Suspect]
     Indication: HODGKIN^S LYMPHOMA
     Dates: start: 2012, end: 20121214
  2. SIROLIMUS (SIROLIMUS) [Concomitant]

REACTIONS (7)
  - Graft versus host disease [None]
  - Alopecia [None]
  - Stem cell transplant [None]
  - Drug effect decreased [None]
  - Pruritus [None]
  - Skin exfoliation [None]
  - Gastrointestinal disorder [None]
